FAERS Safety Report 24711925 (Version 1)
Quarter: 2024Q4

REPORT INFORMATION
  Report Type: Spontaneous
  Country: US (occurrence: None)
  Receive Date: 20241206
  Receipt Date: 20241206
  Transmission Date: 20250115
  Serious: Yes (Hospitalization)
  Sender: Public
  Company Number: None

PATIENT
  Age: 40 Year
  Sex: Male

DRUGS (5)
  1. XCOPRI [Suspect]
     Active Substance: CENOBAMATE
     Indication: Epilepsy
     Dosage: ?300 MG DAILY ORAL
     Route: 048
     Dates: start: 20240705
  2. LACOSAMIDE [Concomitant]
     Active Substance: LACOSAMIDE
  3. TOPIRAMATE [Concomitant]
     Active Substance: TOPIRAMATE
  4. PRIMIDONE [Concomitant]
     Active Substance: PRIMIDONE
  5. LYRICA [Concomitant]
     Active Substance: PREGABALIN

REACTIONS (2)
  - Seizure [None]
  - Product dose omission issue [None]

NARRATIVE: CASE EVENT DATE: 20241129
